FAERS Safety Report 4331725-4 (Version None)
Quarter: 2004Q2

REPORT INFORMATION
  Report Type: 
  Country: None (occurrence: None)
  Receive Date: 20040405
  Receipt Date: 20030423
  Transmission Date: 20050107
  Serious: No
  Sender: FDA-Public Use
  Company Number: US-GLAXOSMITHKLINE-A0406061A

PATIENT
  Age: 54 Year
  Sex: Female
  Weight: 68.2 kg

DRUGS (2)
  1. FLOVENT [Suspect]
     Indication: ILL-DEFINED DISORDER
     Dosage: 1PUFF TWICE PER DAY
     Route: 055
  2. CONCURRENT MEDICATIONS [Concomitant]

REACTIONS (1)
  - THROAT IRRITATION [None]
